FAERS Safety Report 7372810-2 (Version None)
Quarter: 2011Q1

REPORT INFORMATION
  Report Type: 
  Country: None (occurrence: None)
  Receive Date: 20110324
  Receipt Date: 20110124
  Transmission Date: 20110831
  Serious: No
  Sender: FDA-Public Use
  Company Number: US-BAUSCH-2011BL000457

PATIENT

DRUGS (2)
  1. BESIVANCE [Suspect]
     Indication: OFF LABEL USE
     Route: 047
  2. BESIVANCE [Suspect]
     Indication: POSTOPERATIVE CARE
     Route: 047

REACTIONS (1)
  - CORNEAL ABRASION [None]
